FAERS Safety Report 8008324-6 (Version None)
Quarter: 2011Q4

REPORT INFORMATION
  Report Type: 
  Country: None (occurrence: None)
  Receive Date: 20111227
  Receipt Date: 20111219
  Transmission Date: 20120403
  Serious: Yes (Other)
  Sender: FDA-Public Use
  Company Number: US-JNJFOC-20110909823

PATIENT
  Sex: Female

DRUGS (4)
  1. INFANTS MYLICON NON-STAINING DROPS [Suspect]
     Indication: ABDOMINAL PAIN
     Dosage: ONCE EVERY OTHER DAY OR EVERY THIRD DAY
     Route: 048
     Dates: start: 20110802, end: 20110801
  2. ZANTAC [Concomitant]
     Dosage: INTRAVENOUS/ STARTED AT BIRTH
  3. INFANTS MYLICON NON-STAINING DROPS [Suspect]
     Indication: FLATULENCE
     Dosage: ONCE EVERY OTHER DAY OR EVERY THIRD DAY
     Route: 048
     Dates: start: 20110802, end: 20110801
  4. PRILOSEC [Concomitant]
     Indication: GASTROOESOPHAGEAL REFLUX DISEASE
     Dosage: TAKEN FROM BIRTH
     Route: 048
     Dates: start: 20110701

REACTIONS (4)
  - REACTION TO DRUG EXCIPIENTS [None]
  - PRODUCT LABEL ISSUE [None]
  - DYSPNOEA [None]
  - CHOKING [None]
